FAERS Safety Report 23303331 (Version 1)
Quarter: 2023Q4

REPORT INFORMATION
  Report Type: Spontaneous
  Country: US (occurrence: US)
  Receive Date: 20231215
  Receipt Date: 20231215
  Transmission Date: 20240110
  Serious: Yes (Hospitalization, Other)
  Sender: FDA-Public Use
  Company Number: US-SPECGX-T202302335

PATIENT
  Age: 3 Year
  Sex: Male

DRUGS (3)
  1. FENTANYL CITRATE [Suspect]
     Active Substance: FENTANYL CITRATE
     Indication: Product used for unknown indication
     Dosage: UNK
     Route: 065
  2. NALOXONE [Suspect]
     Active Substance: NALOXONE
     Indication: Overdose
     Dosage: 0.1 MG/KG
     Route: 042
  3. NALOXONE [Suspect]
     Active Substance: NALOXONE
     Dosage: 0.1 MG/KG
     Route: 065

REACTIONS (10)
  - Brain injury [Unknown]
  - Non-cardiogenic pulmonary oedema [Recovering/Resolving]
  - Mental status changes [Unknown]
  - Hyporesponsive to stimuli [Unknown]
  - Respiratory depression [Unknown]
  - Miosis [Unknown]
  - Pneumothorax [Unknown]
  - Overdose [Unknown]
  - Accidental exposure to product by child [Unknown]
  - Endotracheal intubation [Unknown]
